FAERS Safety Report 13895475 (Version 2)
Quarter: 2017Q3

REPORT INFORMATION
  Report Type: Spontaneous
  Country: US (occurrence: US)
  Receive Date: 20170823
  Receipt Date: 20170908
  Transmission Date: 20171127
  Serious: No
  Sender: FDA-Public Use
  Company Number: US-PFIZER INC-2017362717

PATIENT
  Age: 57 Year
  Sex: Female

DRUGS (2)
  1. XELJANZ XR [Suspect]
     Active Substance: TOFACITINIB CITRATE
     Dosage: 11 MG, UNK
  2. METHOTREXATE SODIUM. [Suspect]
     Active Substance: METHOTREXATE SODIUM
     Dosage: UNK

REACTIONS (7)
  - Pain [Unknown]
  - Joint crepitation [Unknown]
  - Arthritis [Unknown]
  - Tenderness [Unknown]
  - Peripheral swelling [Unknown]
  - Synovitis [Unknown]
  - Arthralgia [Unknown]

NARRATIVE: CASE EVENT DATE: 201708
